FAERS Safety Report 10879522 (Version 1)
Quarter: 2015Q1

REPORT INFORMATION
  Report Type: Spontaneous
  Country: US (occurrence: None)
  Receive Date: 20150224
  Receipt Date: 20150224
  Transmission Date: 20150721
  Serious: Yes (Death)
  Sender: FDA-Public Use
  Company Number: None

PATIENT
  Age: 64 Year
  Sex: Female
  Weight: 75.3 kg

DRUGS (2)
  1. CYTARABINE. [Suspect]
     Active Substance: CYTARABINE
     Dates: end: 20150202
  2. DAUNORUBICIN [Suspect]
     Active Substance: DAUNORUBICIN
     Dates: end: 20150129

REACTIONS (15)
  - Respiratory distress [None]
  - Confusional state [None]
  - Weight increased [None]
  - Hypotension [None]
  - Thrombocytopenia [None]
  - Pseudomonas test positive [None]
  - Fluid overload [None]
  - Diastolic dysfunction [None]
  - Biopsy bone marrow abnormal [None]
  - Clostridium difficile colitis [None]
  - Acute kidney injury [None]
  - Febrile neutropenia [None]
  - Pneumonia [None]
  - Aphasia [None]
  - Metabolic acidosis [None]

NARRATIVE: CASE EVENT DATE: 20150219
